FAERS Safety Report 6084056-9 (Version None)
Quarter: 2009Q1

REPORT INFORMATION
  Report Type: 
  Country: None (occurrence: None)
  Receive Date: 20090217
  Receipt Date: 20090217
  Transmission Date: 20090719
  Serious: Yes (Hospitalization, Other)
  Sender: FDA-Public Use
  Company Number: None

PATIENT
  Sex: Female
  Weight: 99.7913 kg

DRUGS (1)
  1. LEVETIRACETAM [Suspect]
     Indication: EPILEPSY
     Dosage: 750 MG BID PO
     Route: 048
     Dates: start: 20090205, end: 20090208

REACTIONS (3)
  - DRUG LEVEL CHANGED [None]
  - GRAND MAL CONVULSION [None]
  - PRODUCT QUALITY ISSUE [None]
